FAERS Safety Report 9330666 (Version 1)
Quarter: 2013Q2

REPORT INFORMATION
  Report Type: Spontaneous
  Country: US (occurrence: None)
  Receive Date: 20130604
  Receipt Date: 20130604
  Transmission Date: 20140414
  Serious: No
  Sender: FDA-Public Use
  Company Number: None

PATIENT
  Age: 51 Year
  Sex: Female
  Weight: 70.9 kg

DRUGS (1)
  1. CISPLATIN [Suspect]

REACTIONS (4)
  - Hypotension [None]
  - Dysuria [None]
  - Dizziness [None]
  - Pancytopenia [None]
